FAERS Safety Report 13668028 (Version 1)
Quarter: 2017Q2

REPORT INFORMATION
  Report Type: Spontaneous
  Country: FR (occurrence: FR)
  Receive Date: 20170620
  Receipt Date: 20170620
  Transmission Date: 20170830
  Serious: Yes (Death)
  Sender: FDA-Public Use
  Company Number: FR-ENDO PHARMACEUTICALS INC-2017-003433

PATIENT
  Age: 34 Year
  Sex: Male

DRUGS (1)
  1. BACLOFEN TABLETS [Suspect]
     Active Substance: BACLOFEN
     Indication: ALCOHOLISM
     Dosage: UNK UNK, UNKNOWN
     Route: 065

REACTIONS (2)
  - Toxicity to various agents [Fatal]
  - Off label use [Unknown]

NARRATIVE: CASE EVENT DATE: 2013
